FAERS Safety Report 24907492 (Version 1)
Quarter: 2025Q1

REPORT INFORMATION
  Report Type: Spontaneous
  Country: GB (occurrence: GB)
  Receive Date: 20250130
  Receipt Date: 20250130
  Transmission Date: 20250409
  Serious: Yes (Other)
  Sender: BRISTOL-MYERS SQUIBB COMPANY
  Company Number: GB-BRISTOL-MYERS SQUIBB COMPANY-2025-013295

PATIENT
  Age: 55 Year
  Sex: Female

DRUGS (4)
  1. OPDIVO [Suspect]
     Active Substance: NIVOLUMAB
     Indication: Metastatic malignant melanoma
     Dates: start: 20210628, end: 20210809
  2. OPDIVO [Suspect]
     Active Substance: NIVOLUMAB
     Indication: Metastases to central nervous system
  3. YERVOY [Suspect]
     Active Substance: IPILIMUMAB
     Indication: Metastatic malignant melanoma
     Dates: start: 20210628, end: 20210809
  4. YERVOY [Suspect]
     Active Substance: IPILIMUMAB
     Indication: Metastases to central nervous system

REACTIONS (6)
  - Malignant neoplasm progression [Unknown]
  - Toxicity to various agents [Unknown]
  - Hyperthyroidism [Unknown]
  - Rash [Unknown]
  - Diarrhoea [Unknown]
  - Brain radiation necrosis [Recovering/Resolving]

NARRATIVE: CASE EVENT DATE: 20211108
